FAERS Safety Report 17116817 (Version 3)
Quarter: 2020Q2

REPORT INFORMATION
  Report Type: Report from Study
  Country: TW (occurrence: TW)
  Receive Date: 20191205
  Receipt Date: 20200504
  Transmission Date: 20200713
  Serious: Yes (Other)
  Sender: FDA-Public Use
  Company Number: TW-INCYTE CORPORATION-2019IN007908

PATIENT

DRUGS (16)
  1. COZAAR [Concomitant]
     Active Substance: LOSARTAN POTASSIUM
     Indication: HYPERTENSION
     Dosage: 100 MG
     Route: 048
     Dates: start: 20141210
  2. HARNALIDGE [Concomitant]
     Active Substance: TAMSULOSIN HYDROCHLORIDE
     Indication: BENIGN PROSTATIC HYPERPLASIA
     Dosage: 0.2 MG
     Route: 048
     Dates: start: 20140627
  3. INDOL [Concomitant]
     Active Substance: INDOMETHACIN
     Indication: ARTHRALGIA
     Dosage: 1 APPLY, QD (10 G/TUBE)
     Route: 065
  4. JAKAVI [Suspect]
     Active Substance: RUXOLITINIB
     Indication: MYELOFIBROSIS
     Dosage: 15 MG, UNK
     Route: 048
     Dates: start: 20170428
  5. SYNORID [Concomitant]
     Indication: GOUT
     Dosage: 100 MG
     Route: 048
     Dates: start: 20190519
  6. PROSCAR [Concomitant]
     Active Substance: FINASTERIDE
     Indication: BENIGN PROSTATIC HYPERPLASIA
     Dosage: 5 MG
     Route: 048
     Dates: start: 20140627
  7. FUSIDIC ACID [Concomitant]
     Active Substance: FUSIDIC ACID
     Indication: ECZEMA
     Dosage: UNK
     Route: 061
     Dates: start: 20161011, end: 20170724
  8. INDERAL [Concomitant]
     Active Substance: PROPRANOLOL HYDROCHLORIDE
     Indication: HYPERTENSION
     Dosage: UNK
     Route: 048
     Dates: start: 20171102, end: 20171120
  9. ULTRACET [Concomitant]
     Active Substance: ACETAMINOPHEN\TRAMADOL HYDROCHLORIDE
     Indication: CHRONIC KIDNEY DISEASE
     Dosage: UNK
     Route: 048
     Dates: start: 20171130, end: 20171202
  10. MAXITROL [Concomitant]
     Active Substance: DEXAMETHASONE\NEOMYCIN SULFATE\POLYMYXIN B SULFATE
     Indication: CATARACT OPERATION
     Dosage: 1 GTT, QHS (3.5 G/TUBE)
     Route: 065
  11. CHLORPHENIRAMINE [CHLORPHENAMINE MALEATE] [Concomitant]
     Active Substance: CHLORPHENIRAMINE MALEATE
     Indication: MYELOFIBROSIS
     Dosage: 1/UNK
     Route: 061
     Dates: start: 20170919, end: 20180821
  12. FUSIDIC ACID [Concomitant]
     Active Substance: FUSIDIC ACID
     Dosage: UNK
     Route: 061
     Dates: start: 20180918
  13. METHACIN [INDOMETACIN] [Concomitant]
     Indication: CELLULITIS
     Dosage: 1/UNK
     Route: 061
     Dates: start: 20180918
  14. ALPRALINE [Concomitant]
     Active Substance: ALPRAZOLAM
     Indication: INSOMNIA
     Dosage: 1 DF
     Route: 048
     Dates: start: 20150223, end: 20190212
  15. LIDOCAINE. [Concomitant]
     Active Substance: LIDOCAINE
     Indication: MUSCLE FIBROSIS
     Dosage: 1/UNK
     Route: 061
     Dates: start: 20170919, end: 20180821
  16. INDOMETHACIN [INDOMETACIN] [Concomitant]
     Active Substance: INDOMETHACIN
     Indication: ARTHRALGIA
     Dosage: 1 UNK
     Route: 061
     Dates: start: 20170428, end: 20170821

REACTIONS (14)
  - Hemiparesis [Unknown]
  - Asthenia [Unknown]
  - Hypoaesthesia [Unknown]
  - Conjunctivitis [Not Recovered/Not Resolved]
  - Eye haemorrhage [Recovered/Resolved]
  - Constipation [Not Recovered/Not Resolved]
  - Cerebral atrophy [Unknown]
  - Cataract [Not Recovered/Not Resolved]
  - Periodontitis [Not Recovered/Not Resolved]
  - Dry eye [Not Recovered/Not Resolved]
  - Seborrhoeic dermatitis [Recovered/Resolved]
  - Upper respiratory tract infection [Recovered/Resolved]
  - Nasopharyngitis [Recovered/Resolved]
  - Leukoencephalopathy [Unknown]

NARRATIVE: CASE EVENT DATE: 20170510
